FAERS Safety Report 13526363 (Version 2)
Quarter: 2017Q2

REPORT INFORMATION
  Report Type: Spontaneous
  Country: GR (occurrence: GR)
  Receive Date: 20170509
  Receipt Date: 20170519
  Transmission Date: 20170830
  Serious: Yes (Death, Life-Threatening, Other)
  Sender: FDA-Public Use
  Company Number: GR-SUN PHARMACEUTICAL INDUSTRIES LTD-2016R1-129518

PATIENT
  Age: 52 Year
  Sex: Male

DRUGS (4)
  1. ALPHA-CYPERMETHRIN [Suspect]
     Active Substance: .ALPHA.-CYPERMETHRIN
     Indication: PRODUCT USED FOR UNKNOWN INDICATION
     Dosage: TOTAL VOLUME 50ML
     Route: 048
  2. ALCOHOL. [Suspect]
     Active Substance: ALCOHOL
     Indication: PRODUCT USED FOR UNKNOWN INDICATION
     Dosage: UNK
     Route: 065
  3. DELTAMETHRIN [Suspect]
     Active Substance: DELTAMETHRIN
     Indication: PRODUCT USED FOR UNKNOWN INDICATION
     Dosage: TOTAL VOLUME 50ML
     Route: 048
  4. MIRTAZAPINE. [Suspect]
     Active Substance: MIRTAZAPINE
     Indication: PRODUCT USED FOR UNKNOWN INDICATION
     Dosage: UNK
     Route: 048

REACTIONS (4)
  - Toxicity to various agents [Fatal]
  - Drug interaction [Fatal]
  - Intentional self-injury [Unknown]
  - Completed suicide [Fatal]
